FAERS Safety Report 25691567 (Version 1)
Quarter: 2025Q3

REPORT INFORMATION
  Report Type: Spontaneous
  Country: US (occurrence: US)
  Receive Date: 20250818
  Receipt Date: 20250818
  Transmission Date: 20251021
  Serious: Yes (Other)
  Sender: UNITED THERAPEUTICS
  Company Number: US-UNITED THERAPEUTICS-UNT-2025-028263

PATIENT
  Age: 35 Year
  Sex: Male

DRUGS (9)
  1. REMODULIN [Suspect]
     Active Substance: TREPROSTINIL
     Indication: Heritable pulmonary arterial hypertension
     Route: 041
  2. SOTATERCEPT [Suspect]
     Active Substance: SOTATERCEPT
     Indication: Heritable pulmonary arterial hypertension
  3. SOTATERCEPT [Suspect]
     Active Substance: SOTATERCEPT
  4. SOTATERCEPT [Suspect]
     Active Substance: SOTATERCEPT
  5. SOTATERCEPT [Suspect]
     Active Substance: SOTATERCEPT
  6. SOTATERCEPT [Suspect]
     Active Substance: SOTATERCEPT
  7. SOTATERCEPT [Suspect]
     Active Substance: SOTATERCEPT
  8. MACITENTAN [Concomitant]
     Active Substance: MACITENTAN
     Indication: Heritable pulmonary arterial hypertension
  9. TADALAFIL [Concomitant]
     Active Substance: TADALAFIL
     Indication: Heritable pulmonary arterial hypertension

REACTIONS (3)
  - Pericardial effusion [Not Recovered/Not Resolved]
  - Cardiac tamponade [Unknown]
  - Pericarditis [Unknown]
